FAERS Safety Report 8287377-4 (Version None)
Quarter: 2012Q2

REPORT INFORMATION
  Report Type: 
  Country: None (occurrence: None)
  Receive Date: 20120416
  Receipt Date: 20120412
  Transmission Date: 20120825
  Serious: Yes (Hospitalization, Other)
  Sender: FDA-Public Use
  Company Number: JP-PFIZER INC-2012075125

PATIENT
  Age: 78 Year
  Sex: Female
  Weight: 50 kg

DRUGS (3)
  1. IRESSA [Concomitant]
     Indication: LUNG NEOPLASM MALIGNANT
     Dosage: 250 MG, ALTERNATE DAY
     Route: 048
     Dates: start: 20110728
  2. IRESSA [Concomitant]
     Dosage: 250 MG, 1X/DAY
     Route: 048
     Dates: start: 20110819
  3. CORTRIL [Suspect]
     Dosage: 10 MG, 1X/DAY
     Route: 048

REACTIONS (5)
  - LUMBAR VERTEBRAL FRACTURE [None]
  - BACK PAIN [None]
  - PAIN IN EXTREMITY [None]
  - SPINAL COMPRESSION FRACTURE [None]
  - PATHOLOGICAL FRACTURE [None]
